FAERS Safety Report 9251885 (Version 1)
Quarter: 2013Q2

REPORT INFORMATION
  Report Type: Spontaneous
  Country: US (occurrence: US)
  Receive Date: 20130424
  Receipt Date: 20130424
  Transmission Date: 20140414
  Serious: No
  Sender: FDA-Public Use
  Company Number: US-PFIZER INC-2013125266

PATIENT
  Age: 55 Year
  Sex: Female
  Weight: 58.96 kg

DRUGS (2)
  1. PRISTIQ [Suspect]
     Indication: DEPRESSION
     Dosage: 100 MG, 1X/DAY
     Route: 048
     Dates: start: 20100930
  2. SYNTHROID [Concomitant]
     Indication: HYPOTHYROIDISM
     Dosage: UNK

REACTIONS (2)
  - Blood cholesterol increased [Unknown]
  - Blood sodium decreased [Unknown]
